FAERS Safety Report 19036858 (Version 1)
Quarter: 2021Q1

REPORT INFORMATION
  Report Type: Spontaneous
  Country: US (occurrence: US)
  Receive Date: 20210321
  Receipt Date: 20210321
  Transmission Date: 20210420
  Serious: No
  Sender: FDA-Public Use
  Company Number: None

PATIENT
  Age: 46 Year
  Sex: Female
  Weight: 113.9 kg

DRUGS (18)
  1. MEKTOVI [Suspect]
     Active Substance: BINIMETINIB
     Indication: MALIGNANT MELANOMA
     Route: 048
     Dates: start: 20210215, end: 20210316
  2. ESOMEPRAZOLE MAGNESIUM. [Concomitant]
     Active Substance: ESOMEPRAZOLE MAGNESIUM
  3. FERROUS SULFATE IRON [Concomitant]
  4. IBUPROFEN. [Concomitant]
     Active Substance: IBUPROFEN
  5. METOPROLOL SUCCINATE ER [Concomitant]
     Active Substance: METOPROLOL SUCCINATE
  6. ALBUTEROL SULFATE HFA [Concomitant]
     Active Substance: ALBUTEROL SULFATE
  7. CETIRIZINE HCL [Concomitant]
     Active Substance: CETIRIZINE HYDROCHLORIDE
  8. LIDOCAINE?PRILOCAINE [Concomitant]
     Active Substance: LIDOCAINE\PRILOCAINE
  9. ASCORBIC ACID. [Concomitant]
     Active Substance: ASCORBIC ACID
  10. CALCIUM CARBONATE. [Concomitant]
     Active Substance: CALCIUM CARBONATE
  11. LEVOTHYROXINE SODIUM. [Concomitant]
     Active Substance: LEVOTHYROXINE SODIUM
  12. AMLODIPINE BESYLATE. [Concomitant]
     Active Substance: AMLODIPINE BESYLATE
  13. ADVAIR HFA [Concomitant]
     Active Substance: FLUTICASONE PROPIONATE\SALMETEROL XINAFOATE
  14. SINGULAIR [Concomitant]
     Active Substance: MONTELUKAST SODIUM
  15. ONDANSETRON HCL [Concomitant]
     Active Substance: ONDANSETRON HYDROCHLORIDE
  16. BRAFTOVI [Suspect]
     Active Substance: ENCORAFENIB
     Indication: MALIGNANT MELANOMA
     Route: 048
     Dates: start: 20210215, end: 20210316
  17. DOXEPIN HCL [Concomitant]
     Active Substance: DOXEPIN HYDROCHLORIDE
  18. MUCINEX DM [Concomitant]
     Active Substance: DEXTROMETHORPHAN HYDROBROMIDE\GUAIFENESIN

REACTIONS (2)
  - Hepatic enzyme increased [None]
  - Therapy interrupted [None]

NARRATIVE: CASE EVENT DATE: 20210316
